FAERS Safety Report 17520850 (Version 1)
Quarter: 2020Q1

REPORT INFORMATION
  Report Type: Spontaneous
  Country: US (occurrence: US)
  Receive Date: 20200310
  Receipt Date: 20200310
  Transmission Date: 20200409
  Serious: Yes (Other)
  Sender: FDA-Public Use
  Company Number: US-BIODELIVERY SCIENCES INTERNATIONAL-2020BDSI0204

PATIENT
  Age: 68 Year
  Sex: Female
  Weight: 83.99 kg

DRUGS (5)
  1. METOPROLOL. [Concomitant]
     Active Substance: METOPROLOL
     Indication: HYPERTENSION
     Route: 048
  2. BUPRENORPHINE. [Suspect]
     Active Substance: BUPRENORPHINE
     Indication: PAIN
     Route: 002
     Dates: start: 20200220, end: 202002
  3. ONDANSETRON [Concomitant]
     Active Substance: ONDANSETRON
     Indication: NAUSEA
     Dosage: 1-2 PILLS EVERY 8 HOURS
     Route: 048
  4. HYDROMORPHONE HYDROCHLORIDE. [Concomitant]
     Active Substance: HYDROMORPHONE HYDROCHLORIDE
     Indication: BREAKTHROUGH PAIN
     Dosage: 1 PILL EVERY 4 HOURS ON  AS NEEDED BASIS
     Route: 048
  5. NO DRUG NAME [Concomitant]
     Active Substance: UNSPECIFIED INGREDIENT
     Indication: CHRONIC OBSTRUCTIVE PULMONARY DISEASE
     Dosage: UNKNOWN; UNKNOWN

REACTIONS (9)
  - Belligerence [Unknown]
  - Headache [Unknown]
  - Suicide attempt [Recovered/Resolved]
  - Intentional overdose [Recovered/Resolved]
  - Aggression [Unknown]
  - Drug ineffective [Unknown]
  - Abnormal behaviour [Unknown]
  - Product physical consistency issue [Unknown]
  - Mood altered [Unknown]

NARRATIVE: CASE EVENT DATE: 2020
